FAERS Safety Report 4330599-5 (Version None)
Quarter: 2004Q2

REPORT INFORMATION
  Report Type: 
  Country: None (occurrence: None)
  Receive Date: 20040402
  Receipt Date: 20040308
  Transmission Date: 20050107
  Serious: Yes (Death, Hospitalization)
  Sender: FDA-Public Use
  Company Number: ES-ROCHE-361023

PATIENT
  Age: 62 Year
  Sex: Male
  Weight: 83.5 kg

DRUGS (6)
  1. CAPECITABINE [Suspect]
     Dosage: ACTUAL DOSE GIVEN = 2000MG TWICE A DAY, TWO WEEKS TREATMENT FOLLOWED BY ONE WEEKS REST.
     Route: 048
     Dates: start: 20040127, end: 20040306
  2. OXALIPLATIN [Suspect]
     Dosage: ACTUAL DOSE GIVEN  257MG, ONCE EVERY THREE WEEKS.
     Route: 042
     Dates: start: 20040127, end: 20040306
  3. BLOKIUM DIU [Concomitant]
     Dates: end: 20040304
  4. FORTASEC [Concomitant]
     Dates: start: 20040304, end: 20040304
  5. BOI K [Concomitant]
     Dates: start: 20040304, end: 20040304
  6. PRIMPERAN INJ [Concomitant]
     Dates: start: 20040304, end: 20040304

REACTIONS (13)
  - CONFUSIONAL STATE [None]
  - DEHYDRATION [None]
  - DIARRHOEA [None]
  - ELECTROLYTE IMBALANCE [None]
  - HEPATIC CIRRHOSIS [None]
  - HEPATIC ENCEPHALOPATHY [None]
  - HEPATIC FAILURE [None]
  - HYPOCALCAEMIA [None]
  - HYPOKALAEMIA [None]
  - HYPONATRAEMIA [None]
  - NAUSEA [None]
  - PROTHROMBIN LEVEL DECREASED [None]
  - VOMITING [None]
